FAERS Safety Report 12772825 (Version 1)
Quarter: 2016Q3

REPORT INFORMATION
  Report Type: Spontaneous
  Country: US (occurrence: US)
  Receive Date: 20160922
  Receipt Date: 20160922
  Transmission Date: 20161109
  Serious: No
  Sender: FDA-Public Use
  Company Number: US-GLAXOSMITHKLINE-US2016135754

PATIENT
  Age: 84 Year
  Sex: Female

DRUGS (2)
  1. EXCEDRIN MIGRAINE [Suspect]
     Active Substance: ACETAMINOPHEN\ASPIRIN\CAFFEINE
     Dosage: 4 DF, UNK
     Dates: start: 20160913
  2. EXCEDRIN MIGRAINE [Suspect]
     Active Substance: ACETAMINOPHEN\ASPIRIN\CAFFEINE
     Indication: MIGRAINE
     Dosage: UNK, 2 PILLS, 2 OR 3 TIMES A DAY
     Route: 048

REACTIONS (4)
  - Feeling hot [Unknown]
  - Incorrect dosage administered [Unknown]
  - Overdose [Unknown]
  - Emergency care examination [Unknown]
